FAERS Safety Report 7356520-3 (Version None)
Quarter: 2011Q1

REPORT INFORMATION
  Report Type: 
  Country: None (occurrence: None)
  Receive Date: 20110316
  Receipt Date: 20110302
  Transmission Date: 20110831
  Serious: Yes (Other)
  Sender: FDA-Public Use
  Company Number: PHHY2011DE17527

PATIENT
  Sex: Female

DRUGS (1)
  1. TASIGNA [Suspect]
     Dosage: 300 MG, BID
     Route: 048
     Dates: start: 20110201

REACTIONS (4)
  - PAIN OF SKIN [None]
  - KERATOSIS FOLLICULAR [None]
  - NIPPLE PAIN [None]
  - ACNE [None]
